FAERS Safety Report 6901013-8 (Version None)
Quarter: 2010Q3

REPORT INFORMATION
  Report Type: 
  Country: None (occurrence: None)
  Receive Date: 20100730
  Receipt Date: 20100607
  Transmission Date: 20110219
  Serious: Yes (Hospitalization, Other)
  Sender: FDA-Public Use
  Company Number: 8047912

PATIENT
  Weight: 56 kg

DRUGS (13)
  1. CERTOLIZUMAB PEGOL (CERTOLIZUMAB PEGOL) [Suspect]
     Indication: RHEUMATOID ARTHRITIS
     Dosage: 400MG 1X/2 WEEK, -NR OF DOSES: 3 SUBCUTANEOUS, 200 MG, DOSE FREQ : ONCE MONTHLY SUBCUTANEOUS
     Route: 058
     Dates: start: 20090401, end: 20090429
  2. CERTOLIZUMAB PEGOL (CERTOLIZUMAB PEGOL) [Suspect]
     Indication: RHEUMATOID ARTHRITIS
     Dosage: 400MG 1X/2 WEEK, -NR OF DOSES: 3 SUBCUTANEOUS, 200 MG, DOSE FREQ : ONCE MONTHLY SUBCUTANEOUS
     Route: 058
     Dates: start: 20090512
  3. METHOTREXATE [Concomitant]
  4. KENALOG [Concomitant]
  5. ADVIL LIQUI-GELS [Concomitant]
  6. PENNSAID [Concomitant]
  7. CLARITIN [Concomitant]
  8. BENADRYL [Concomitant]
  9. PREVACID [Concomitant]
  10. HYDROCORTISONE [Concomitant]
  11. PALAFER [Concomitant]
  12. ORTHO TRI-CYCLEN [Concomitant]
  13. GRAVOL TAB [Concomitant]

REACTIONS (4)
  - CELLULITIS [None]
  - COMMINUTED FRACTURE [None]
  - FALL [None]
  - TIBIA FRACTURE [None]
